FAERS Safety Report 7890105-5 (Version None)
Quarter: 2011Q4

REPORT INFORMATION
  Report Type: 
  Country: None (occurrence: None)
  Receive Date: 20111103
  Receipt Date: 20111026
  Transmission Date: 20120403
  Serious: Yes (Other)
  Sender: FDA-Public Use
  Company Number: FR-CELGENEUS-056-C5013-11021443

PATIENT
  Sex: Female
  Weight: 70 kg

DRUGS (14)
  1. LEXOMIL [Concomitant]
     Indication: INSOMNIA
     Dosage: 3 MILLIGRAM
     Route: 048
     Dates: start: 20090110
  2. CALCIUM [Concomitant]
     Indication: HYPOCALCAEMIA
     Dosage: 500 MILLIGRAM
     Route: 048
     Dates: start: 20090213
  3. ATENOLOL [Concomitant]
     Indication: ATRIAL FIBRILLATION
     Dosage: 50 MILLIGRAM
     Route: 048
     Dates: start: 20090320
  4. LENALIDOMIDE [Suspect]
     Dosage: 2.5 MILLIGRAM
     Route: 048
     Dates: start: 20100123
  5. ATORVASTATIN CALCIUM [Concomitant]
     Dosage: 10 MILLIGRAM
     Route: 048
     Dates: start: 20070801
  6. LASIX [Concomitant]
     Dosage: 40 MILLIGRAM
     Route: 048
     Dates: start: 20090904, end: 20110301
  7. DEXAMETHASONE [Suspect]
     Indication: MULTIPLE MYELOMA
     Dosage: 20 MILLIGRAM
     Route: 065
     Dates: start: 20081025
  8. ANTICOAGULANTS [Concomitant]
     Route: 065
  9. PREVISCAN [Concomitant]
     Indication: THROMBOSIS PROPHYLAXIS
     Dosage: 5-10MG
     Route: 048
     Dates: start: 20090119
  10. ACETAMINOPHEN AND CODEINE PHOSPHATE [Concomitant]
     Indication: BONE PAIN
     Route: 048
     Dates: start: 20030912
  11. LENALIDOMIDE [Suspect]
     Indication: MULTIPLE MYELOMA
     Dosage: 10 MILLIGRAM
     Route: 048
     Dates: start: 20081025
  12. LASIX [Concomitant]
  13. DEXAMETHASONE [Suspect]
     Dosage: 12 MILLIGRAM
     Route: 065
     Dates: start: 20100123
  14. COLCHICINE [Concomitant]
     Indication: CHONDROCALCINOSIS
     Dosage: 1 MILLIGRAM
     Route: 048
     Dates: start: 20100120, end: 20100127

REACTIONS (1)
  - SQUAMOUS CELL CARCINOMA OF SKIN [None]
